FAERS Safety Report 4988457-9 (Version None)
Quarter: 2006Q2

REPORT INFORMATION
  Report Type: 
  Country: None (occurrence: None)
  Receive Date: 20060502
  Receipt Date: 20060424
  Transmission Date: 20061013
  Serious: Yes (Death)
  Sender: FDA-Public Use
  Company Number: US-SANOFI-SYNTHELABO-A03200602627

PATIENT
  Sex: Male
  Weight: 82.54 kg

DRUGS (4)
  1. PLAVIX [Suspect]
     Indication: STENT PLACEMENT
     Route: 048
     Dates: start: 20020101
  2. SIMVASTATIN [Concomitant]
     Dosage: UNK
     Route: 048
  3. HUMULIN 70/30 [Concomitant]
     Dosage: 70/30 30 UNITS QAM AND 20 UNITS QPM
     Route: 058
  4. ATENOLOL [Concomitant]
     Dosage: UNK
     Route: 048

REACTIONS (3)
  - CEREBROVASCULAR ACCIDENT [None]
  - DRUG INEFFECTIVE [None]
  - MYOCARDIAL INFARCTION [None]
